FAERS Safety Report 12521516 (Version 1)
Quarter: 2016Q3

REPORT INFORMATION
  Report Type: Spontaneous
  Country: US (occurrence: US)
  Receive Date: 20160701
  Receipt Date: 20160701
  Transmission Date: 20161109
  Serious: Yes (Other)
  Sender: FDA-Public Use
  Company Number: US-JNJFOC-20160622605

PATIENT
  Sex: Male

DRUGS (1)
  1. REMICADE [Suspect]
     Active Substance: INFLIXIMAB
     Indication: RHEUMATOID ARTHRITIS
     Route: 042

REACTIONS (6)
  - Cardiac disorder [Unknown]
  - Fatigue [Unknown]
  - Lyme disease [Unknown]
  - Staphylococcal infection [Unknown]
  - Tooth loss [Unknown]
  - Dental implantation [Unknown]
